FAERS Safety Report 5817819-2 (Version None)
Quarter: 2008Q3

REPORT INFORMATION
  Report Type: 
  Country: None (occurrence: None)
  Receive Date: 20080722
  Receipt Date: 20080715
  Transmission Date: 20090109
  Serious: Yes (Death, Hospitalization)
  Sender: FDA-Public Use
  Company Number: US-AVENTIS-200814298US

PATIENT
  Sex: Female

DRUGS (6)
  1. TAXOTERE [Suspect]
     Indication: BREAST CANCER
     Route: 042
     Dates: start: 20080512, end: 20080512
  2. CYTOXAN [Suspect]
     Indication: BREAST CANCER
     Route: 042
     Dates: start: 20080512, end: 20080512
  3. ALOXI [Concomitant]
     Indication: NAUSEA
     Route: 042
     Dates: start: 20080512, end: 20080512
  4. EMEND [Concomitant]
     Indication: NAUSEA
     Route: 042
     Dates: start: 20080512, end: 20080512
  5. ARANESP [Concomitant]
     Route: 058
     Dates: start: 20080513, end: 20080513
  6. NEULASTA [Concomitant]
     Indication: NEUTROPENIA
     Route: 058
     Dates: start: 20080513, end: 20080513

REACTIONS (3)
  - HYPOXIA [None]
  - INTERSTITIAL LUNG DISEASE [None]
  - LUNG INFILTRATION [None]
